FAERS Safety Report 12526797 (Version 1)
Quarter: 2016Q3

REPORT INFORMATION
  Report Type: Spontaneous
  Country: US (occurrence: None)
  Receive Date: 20160701
  Receipt Date: 20160701
  Transmission Date: 20161109
  Serious: No
  Sender: FDA-Public Use
  Company Number: None

PATIENT
  Age: 49 Year
  Sex: Female
  Weight: 85.5 kg

DRUGS (2)
  1. OXALIPLATIN, 100 MG HOSPIRA [Suspect]
     Active Substance: OXALIPLATIN
     Indication: RECTAL CANCER
     Route: 042
     Dates: start: 20160620, end: 20160620
  2. OXALIPLATIN, 50 MG HOSPIRA [Suspect]
     Active Substance: OXALIPLATIN
     Indication: RECTAL CANCER
     Route: 042
     Dates: start: 20160620, end: 20160620

REACTIONS (5)
  - Neuropathy peripheral [None]
  - Nasopharyngitis [None]
  - Chest discomfort [None]
  - Muscle spasms [None]
  - Blood pressure increased [None]

NARRATIVE: CASE EVENT DATE: 20160620
